FAERS Safety Report 10007610 (Version 1)
Quarter: 2014Q1

REPORT INFORMATION
  Report Type: Spontaneous
  Country: US (occurrence: US)
  Receive Date: 20140313
  Receipt Date: 20140313
  Transmission Date: 20141002
  Serious: Yes (Other)
  Sender: FDA-Public Use
  Company Number: US-BAYER-2014-034240

PATIENT
  Age: 65 Year
  Sex: Female

DRUGS (3)
  1. ACETYLSALICYLIC ACID (} 100 MG) [Suspect]
     Indication: THROMBOSIS PROPHYLAXIS
     Dosage: HISTORICAL DOSE NOT REPORTED
  2. ACETYLSALICYLIC ACID (} 100 MG) [Suspect]
     Indication: THROMBOSIS PROPHYLAXIS
     Dosage: DESENSITIZING PROTOCOL: 20 , 40, 60, TO 300 MG
     Route: 048
  3. ACETYLSALICYLIC ACID (} 100 MG) [Suspect]
     Indication: THROMBOSIS PROPHYLAXIS
     Dosage: 325 MG, QD
     Route: 048

REACTIONS (9)
  - Analgesic asthma syndrome [Recovered/Resolved]
  - Wheezing [Recovered/Resolved]
  - Cough [Recovered/Resolved]
  - Rhinorrhoea [Recovered/Resolved]
  - Chest discomfort [Recovered/Resolved]
  - Nasal congestion [Recovered/Resolved]
  - Angioedema [Recovered/Resolved]
  - Erythema [Recovered/Resolved]
  - Nasal congestion [Recovered/Resolved]
